FAERS Safety Report 17843775 (Version 2)
Quarter: 2020Q2

REPORT INFORMATION
  Report Type: Spontaneous
  Country: DE (occurrence: DE)
  Receive Date: 20200531
  Receipt Date: 20200609
  Transmission Date: 20200714
  Serious: Yes (Hospitalization, Other)
  Sender: FDA-Public Use
  Company Number: DE-009507513-2005DEU008619

PATIENT
  Age: 59 Year
  Sex: Male

DRUGS (1)
  1. BCG LIVE [Suspect]
     Active Substance: BACILLUS CALMETTE-GUERIN SUBSTRAIN TICE LIVE ANTIGEN
     Indication: TRANSITIONAL CELL CARCINOMA
     Dosage: UNK, EVERY 3 MONTHS
     Route: 043

REACTIONS (1)
  - Disseminated Bacillus Calmette-Guerin infection [Recovered/Resolved]

NARRATIVE: CASE EVENT DATE: 2013
